FAERS Safety Report 8648746 (Version 3)
Quarter: 2012Q4

REPORT INFORMATION
  Report Type: 
  Country: US (occurrence: US)
  Receive Date: 20120703
  Receipt Date: 20121024
  Transmission Date: 20130627
  Serious: Yes (Other)
  Sender: FDA-Public Use
  Company Number: US-ELI_LILLY_AND_COMPANY-US201206008682

PATIENT
  Age: 58 Year
  Sex: Male

DRUGS (2)
  1. CYMBALTA [Suspect]
     Indication: OFF LABEL USE
     Dosage: 30 mg, qd
     Route: 065
     Dates: start: 20120419
  2. DOXYCYCLINE [Concomitant]

REACTIONS (6)
  - Exfoliative rash [Recovered/Resolved]
  - Blister [Recovered/Resolved]
  - Off label use [Unknown]
  - Skin discolouration [Not Recovered/Not Resolved]
  - Rash macular [Not Recovered/Not Resolved]
  - Erythema [Not Recovered/Not Resolved]
